FAERS Safety Report 16006872 (Version 1)
Quarter: 2019Q1

REPORT INFORMATION
  Report Type: Spontaneous
  Country: CN (occurrence: CN)
  Receive Date: 20190222
  Receipt Date: 20190222
  Transmission Date: 20190418
  Serious: Yes (Other)
  Sender: FDA-Public Use
  Company Number: CN-ASTRAZENECA-2019SE29514

PATIENT
  Age: 50 Year
  Sex: Male
  Weight: 100 kg

DRUGS (1)
  1. FORXIGA [Suspect]
     Active Substance: DAPAGLIFLOZIN
     Indication: BLOOD GLUCOSE INCREASED
     Route: 048
     Dates: start: 20171116, end: 20190123

REACTIONS (2)
  - Urinary tract infection [Recovered/Resolved]
  - Ketosis [Recovered/Resolved]

NARRATIVE: CASE EVENT DATE: 20190117
